FAERS Safety Report 4381289-4 (Version None)
Quarter: 2004Q2

REPORT INFORMATION
  Report Type: 
  Country: None (occurrence: None)
  Receive Date: 20040616
  Receipt Date: 20040604
  Transmission Date: 20050107
  Serious: Yes (Other)
  Sender: FDA-Public Use
  Company Number: US-JNJFOC-20040601529

PATIENT
  Sex: Female

DRUGS (1)
  1. REMICADE [Suspect]
     Dosage: INTRAVENOUS
     Dates: end: 20040219

REACTIONS (1)
  - SURGERY [None]
